FAERS Safety Report 4426487-6 (Version None)
Quarter: 2004Q3

REPORT INFORMATION
  Report Type: 
  Country: None (occurrence: None)
  Receive Date: 20040816
  Receipt Date: 20040804
  Transmission Date: 20050211
  Serious: Yes (Other)
  Sender: FDA-Public Use
  Company Number: US-JNJFOC-20040801827

PATIENT
  Sex: Female
  Weight: 63.5 kg

DRUGS (12)
  1. REMICADE [Suspect]
     Route: 042
  2. METHOTREXATE [Concomitant]
  3. FOLIC ACID [Concomitant]
  4. M.V.I. [Concomitant]
  5. M.V.I. [Concomitant]
  6. M.V.I. [Concomitant]
  7. M.V.I. [Concomitant]
  8. M.V.I. [Concomitant]
  9. M.V.I. [Concomitant]
  10. M.V.I. [Concomitant]
  11. M.V.I. [Concomitant]
  12. CALCIUM [Concomitant]

REACTIONS (5)
  - AUTOIMMUNE THYROIDITIS [None]
  - DYSPHAGIA [None]
  - NECK PAIN [None]
  - THYROID NEOPLASM [None]
  - THYROIDITIS SUBACUTE [None]
